FAERS Safety Report 8461308-6 (Version None)
Quarter: 2012Q2

REPORT INFORMATION
  Report Type: 
  Country: None (occurrence: None)
  Receive Date: 20120620
  Receipt Date: 20120620
  Transmission Date: 20120825
  Serious: No
  Sender: FDA-Public Use
  Company Number: None

PATIENT
  Age: 71 Year
  Sex: Female
  Weight: 53.5244 kg

DRUGS (1)
  1. AMOXICILLIN/CLAVULANATE POTASSIUM [Suspect]
     Indication: SINUSITIS
     Dosage: AUGMENTIN 125 2 DAY MOUTH ; (AMOX-TRK-CLU 875-125 MG)
     Route: 048
     Dates: start: 20120501

REACTIONS (1)
  - DIARRHOEA [None]
